FAERS Safety Report 18356034 (Version 2)
Quarter: 2020Q4

REPORT INFORMATION
  Report Type: Report from Study
  Country: CO (occurrence: CO)
  Receive Date: 20201007
  Receipt Date: 20201110
  Transmission Date: 20210114
  Serious: Yes (Other)
  Sender: FDA-Public Use
  Company Number: NVSC2020CO244523

PATIENT
  Age: 64 Year
  Sex: Female
  Weight: 88 kg

DRUGS (9)
  1. FULVESTRANT. [Suspect]
     Active Substance: FULVESTRANT
     Dosage: UNK (28 DAYS)
     Route: 065
     Dates: start: 202006
  2. CARVEDIOL [Suspect]
     Active Substance: CARVEDILOL
     Indication: HYPERTENSION
     Dosage: 0.625 MG, BID (STARTED 8 YEARS AGO APPROXIMATELY)
     Route: 048
  3. FULVESTRANT. [Suspect]
     Active Substance: FULVESTRANT
     Indication: PRODUCT USED FOR UNKNOWN INDICATION
     Dosage: 600 MG, QMO (EVERY 28 DAYS)
     Route: 030
  4. ALENDRONIC ACID [Concomitant]
     Active Substance: ALENDRONIC ACID
     Indication: BREAST CANCER
     Dosage: 600 MG, QMO (EVERY 28 DAYS, STARTED FROM 2 YEARS AGO))
     Route: 042
  5. LODIPINE [Concomitant]
     Indication: HYPERTENSION
     Dosage: 5 MG, QD (2 YEARS AGO APPROXIMATELY)
     Route: 048
  6. FULVESTRANT. [Suspect]
     Active Substance: FULVESTRANT
     Dosage: UNK (21 DAYS)
     Route: 065
  7. LOSARTAN. [Concomitant]
     Active Substance: LOSARTAN
     Indication: HYPERTENSION
     Dosage: UNK, BID (15 YEARS AGO APPROXIMATELY)
     Route: 048
  8. KISQALI [Suspect]
     Active Substance: RIBOCICLIB
     Indication: BREAST CANCER METASTATIC
     Dosage: 600 MG, QD (3 X 200MG TABLETS)
     Route: 048
     Dates: start: 20200710
  9. TRAZODONE [Concomitant]
     Active Substance: TRAZODONE HYDROCHLORIDE
     Indication: INSOMNIA
     Dosage: 50 MG, Q24H
     Route: 065

REACTIONS (11)
  - Feeling abnormal [Unknown]
  - Rash [Unknown]
  - White blood cell count decreased [Unknown]
  - Blood pressure increased [Recovered/Resolved]
  - Dizziness [Recovered/Resolved]
  - Stress [Recovered/Resolved]
  - Inflammation [Recovered/Resolved]
  - Erythema [Unknown]
  - Haemoglobin decreased [Unknown]
  - Inappropriate schedule of product administration [Unknown]
  - Pruritus [Recovered/Resolved]

NARRATIVE: CASE EVENT DATE: 202008
